FAERS Safety Report 6855888-1 (Version None)
Quarter: 2010Q2

REPORT INFORMATION
  Report Type: 
  Country: None (occurrence: None)
  Receive Date: 20100629
  Receipt Date: 20100317
  Transmission Date: 20101027
  Serious: No
  Sender: FDA-Public Use
  Company Number: US-WYE-H14228410

PATIENT
  Age: 27 Year
  Sex: Male

DRUGS (5)
  1. PRISTIQ [Suspect]
     Dosage: 100 MG 1X PER 1 DAY, ORAL
     Route: 048
     Dates: start: 20090101
  2. ESKALITH [Concomitant]
  3. KLONOPIN [Concomitant]
  4. LAMICTAL [Concomitant]
  5. ZYPREXA [Concomitant]

REACTIONS (1)
  - DRUG SCREEN FALSE POSITIVE [None]
